FAERS Safety Report 12010260 (Version 2)
Quarter: 2016Q1

REPORT INFORMATION
  Report Type: Spontaneous
  Country: US (occurrence: US)
  Receive Date: 20160205
  Receipt Date: 20160224
  Transmission Date: 20160526
  Serious: No
  Sender: FDA-Public Use
  Company Number: US-PFIZER INC-2016059527

PATIENT
  Age: 88 Year
  Sex: Male
  Weight: 77 kg

DRUGS (1)
  1. GABAPENTIN. [Suspect]
     Active Substance: GABAPENTIN
     Indication: NEUROPATHY PERIPHERAL
     Dosage: 1000 MG, DAILY (500MG CAPSULE TWO A DAY)
     Route: 048
     Dates: start: 20160114

REACTIONS (4)
  - Prostatic disorder [Unknown]
  - Product use issue [Unknown]
  - Urine flow decreased [Recovered/Resolved]
  - Urinary incontinence [Unknown]

NARRATIVE: CASE EVENT DATE: 20160114
